FAERS Safety Report 7783685-1 (Version None)
Quarter: 2011Q3

REPORT INFORMATION
  Report Type: 
  Country: None (occurrence: None)
  Receive Date: 20110926
  Receipt Date: 20110915
  Transmission Date: 20111222
  Serious: No
  Sender: FDA-Public Use
  Company Number: 2011SP005159

PATIENT
  Age: 45 Year
  Sex: Female
  Weight: 58.5 kg

DRUGS (7)
  1. DIAZEPAM [Concomitant]
  2. DESOGESTREL AND ETHINYL ESTRADIOL [Suspect]
     Indication: OVARIAN CYST
     Dosage: QD;PO
     Route: 048
     Dates: start: 20060101
  3. DESOGESTREL AND ETHINYL ESTRADIOL [Suspect]
     Indication: UTERINE LEIOMYOMA
     Dosage: QD;PO
     Route: 048
     Dates: start: 20060101
  4. DESOGESTREL AND ETHINYL ESTRADIOL [Suspect]
     Indication: CONTRACEPTION
     Dosage: QD;PO
     Route: 048
     Dates: start: 20060101
  5. DRAMIN [Concomitant]
  6. RANITIDINE [Concomitant]
  7. VASOPRIL [Concomitant]

REACTIONS (1)
  - WEIGHT INCREASED [None]
